FAERS Safety Report 11272562 (Version 2)
Quarter: 2015Q4

REPORT INFORMATION
  Report Type: Spontaneous
  Country: US (occurrence: US)
  Receive Date: 20150715
  Receipt Date: 20151103
  Transmission Date: 20160304
  Serious: No
  Sender: FDA-Public Use
  Company Number: US-BAYER-2015-378469

PATIENT
  Age: 89 Year
  Sex: Male
  Weight: 79.37 kg

DRUGS (7)
  1. MIRALAX [Suspect]
     Active Substance: POLYETHYLENE GLYCOL 3350
     Indication: CONSTIPATION
     Dosage: 1 DOSE, PRN
     Route: 048
     Dates: start: 2010
  2. ATORVASTATIN [Concomitant]
     Active Substance: ATORVASTATIN
     Indication: BLOOD PRESSURE ABNORMAL
     Dosage: UNK
  3. FESOTERODINE [Concomitant]
     Active Substance: FESOTERODINE
     Dosage: UNK
  4. METFORMIN [Concomitant]
     Active Substance: METFORMIN HYDROCHLORIDE
     Dosage: UNK
  5. BAYER LOW DOSE [Concomitant]
     Active Substance: ASPIRIN
     Indication: ISCHAEMIC HEART DISEASE PROPHYLAXIS
     Dosage: 2 DF, QD
     Route: 048
  6. MIRALAX [Suspect]
     Active Substance: POLYETHYLENE GLYCOL 3350
     Indication: CONSTIPATION
     Dosage: 1 DOSE, PRN
     Route: 048
  7. METAMUCIL [Concomitant]
     Active Substance: PLANTAGO SEED
     Dosage: UNK

REACTIONS (3)
  - Expired product administered [None]
  - Product use issue [None]
  - Drug ineffective [None]

NARRATIVE: CASE EVENT DATE: 20150710
